FAERS Safety Report 5071522-8 (Version None)
Quarter: 2006Q3

REPORT INFORMATION
  Report Type: 
  Country: None (occurrence: None)
  Receive Date: 20060803
  Receipt Date: 20060803
  Transmission Date: 20061208
  Serious: Yes (Other)
  Sender: FDA-Public Use
  Company Number: None

PATIENT
  Age: 44 Year
  Sex: Female
  Weight: 74.8435 kg

DRUGS (2)
  1. LEVAQUIN [Suspect]
     Indication: DIVERTICULITIS
     Dosage: 2 IV'S  ONE A DAY IV
     Route: 042
     Dates: start: 20060722, end: 20060723
  2. LEVAQUIN [Suspect]
     Dosage: 500 MG ONCE DAILY PO
     Route: 048
     Dates: start: 20060724, end: 20060726

REACTIONS (19)
  - ABNORMAL DREAMS [None]
  - AGITATION [None]
  - ARTHRALGIA [None]
  - ASTHENIA [None]
  - CATHETER RELATED COMPLICATION [None]
  - CONFUSIONAL STATE [None]
  - DECREASED APPETITE [None]
  - FEELING ABNORMAL [None]
  - GRIP STRENGTH DECREASED [None]
  - INSOMNIA [None]
  - IRRITABILITY [None]
  - JOINT STIFFNESS [None]
  - MEMORY IMPAIRMENT [None]
  - NIGHTMARE [None]
  - PAIN [None]
  - PAIN IN EXTREMITY [None]
  - PARAESTHESIA [None]
  - STARING [None]
  - TENDON DISORDER [None]
